FAERS Safety Report 23623495 (Version 1)
Quarter: 2024Q1

REPORT INFORMATION
  Report Type: Spontaneous
  Country: BR (occurrence: BR)
  Receive Date: 20240312
  Receipt Date: 20240312
  Transmission Date: 20240410
  Serious: Yes (Other)
  Sender: FDA-Public Use
  Company Number: BR-TAKEDA-2024TUS020380

PATIENT
  Age: 28 Year
  Sex: Male
  Weight: 74 kg

DRUGS (7)
  1. LISDEXAMFETAMINE DIMESYLATE [Suspect]
     Active Substance: LISDEXAMFETAMINE DIMESYLATE
     Indication: Depression
     Dosage: 2 DOSAGE FORM, QD
     Route: 065
  2. ACETAMINOPHEN\CODEINE PHOSPHATE [Concomitant]
     Active Substance: ACETAMINOPHEN\CODEINE PHOSPHATE
     Dosage: UNK
  3. METHOTREXATE [Concomitant]
     Active Substance: METHOTREXATE
     Dosage: UNK
     Route: 065
  4. VITAMIN C [Concomitant]
     Active Substance: ASCORBIC ACID
     Dosage: UNK
  5. VITAMIN D [Concomitant]
     Active Substance: VITAMIN D NOS
     Dosage: UNK
  6. CALCIUM [Concomitant]
     Active Substance: CALCIUM
     Dosage: UNK
  7. ZOLEDRONIC ACID [Concomitant]
     Active Substance: ZOLEDRONIC ACID
     Indication: Bone disorder
     Dosage: UNK

REACTIONS (24)
  - SAPHO syndrome [Unknown]
  - Osteonecrosis [Unknown]
  - Dementia [Unknown]
  - Leprosy [Unknown]
  - Bone loss [Unknown]
  - COVID-19 [Unknown]
  - Feeding disorder [Unknown]
  - Hypogonadism male [Unknown]
  - Arthralgia [Unknown]
  - Arthropathy [Unknown]
  - Jaw disorder [Unknown]
  - Acne pustular [Unknown]
  - Tooth fracture [Unknown]
  - Inability to afford medication [Unknown]
  - Discharge [Unknown]
  - Sleep disorder [Unknown]
  - Muscle spasms [Unknown]
  - Anxiety [Unknown]
  - Weight decreased [Unknown]
  - Decreased appetite [Unknown]
  - Depression [Unknown]
  - Diarrhoea [Unknown]
  - Product use in unapproved indication [Unknown]
  - Inappropriate schedule of product administration [Unknown]

NARRATIVE: CASE EVENT DATE: 20200101
